FAERS Safety Report 14786321 (Version 2)
Quarter: 2020Q1

REPORT INFORMATION
  Report Type: Spontaneous
  Country: US (occurrence: US)
  Receive Date: 20180420
  Receipt Date: 20200221
  Transmission Date: 20200409
  Serious: Yes (Other)
  Sender: FDA-Public Use
  Company Number: US-ASTRAZENECA-2018SE47663

PATIENT
  Age: 20787 Day
  Sex: Female
  Weight: 77.1 kg

DRUGS (48)
  1. PRILOSEC [Suspect]
     Active Substance: OMEPRAZOLE MAGNESIUM
     Indication: GASTROOESOPHAGEAL REFLUX DISEASE
     Route: 048
     Dates: start: 20150313
  2. CLARITIN [Concomitant]
     Active Substance: LORATADINE
     Indication: MULTIPLE ALLERGIES
     Dates: start: 19960807, end: 19971106
  3. METRONIDAZOLE. [Concomitant]
     Active Substance: METRONIDAZOLE
  4. MIRAPEX [Concomitant]
     Active Substance: PRAMIPEXOLE DIHYDROCHLORIDE
     Dates: start: 20070921
  5. PROPOXYPHENE. [Concomitant]
     Active Substance: PROPOXYPHENE
  6. LEVOFLOXACIN. [Concomitant]
     Active Substance: LEVOFLOXACIN
  7. LIDOCAINE. [Concomitant]
     Active Substance: LIDOCAINE
  8. GLIPIZIDE. [Concomitant]
     Active Substance: GLIPIZIDE
     Dates: start: 20070708
  9. SULFAMETHOXAZOLE [Concomitant]
     Active Substance: SULFAMETHOXAZOLE
  10. THIAMINE HCL [Concomitant]
     Active Substance: THIAMINE HYDROCHLORIDE
  11. PRILOSEC [Suspect]
     Active Substance: OMEPRAZOLE MAGNESIUM
     Indication: GASTROOESOPHAGEAL REFLUX DISEASE
     Route: 048
     Dates: start: 198909, end: 201712
  12. DEXILANT [Suspect]
     Active Substance: DEXLANSOPRAZOLE
     Route: 065
     Dates: start: 198909, end: 201712
  13. PREVACID 24 HR [Suspect]
     Active Substance: LANSOPRAZOLE
     Route: 065
     Dates: start: 198909, end: 201712
  14. PRAMIPEXOLE. [Concomitant]
     Active Substance: PRAMIPEXOLE
  15. MUPIROCIN. [Concomitant]
     Active Substance: MUPIROCIN
  16. NEXIUM [Suspect]
     Active Substance: ESOMEPRAZOLE MAGNESIUM
     Route: 048
     Dates: start: 198909, end: 201712
  17. NEXIUM 24HR [Suspect]
     Active Substance: ESOMEPRAZOLE MAGNESIUM
     Route: 048
     Dates: start: 198909, end: 201712
  18. PRILOSEC [Suspect]
     Active Substance: OMEPRAZOLE MAGNESIUM
     Indication: GASTROOESOPHAGEAL REFLUX DISEASE
     Dosage: GENERIC
     Route: 065
     Dates: start: 20111014
  19. PRILOSEC OTC [Suspect]
     Active Substance: OMEPRAZOLE MAGNESIUM
     Route: 048
     Dates: start: 198909, end: 201712
  20. ZITHROMAX [Concomitant]
     Active Substance: AZITHROMYCIN DIHYDRATE
  21. LINDANE. [Concomitant]
     Active Substance: LINDANE
  22. CYCLOBENZAPRINE. [Concomitant]
     Active Substance: CYCLOBENZAPRINE
  23. DICLOFENAC SODIUM. [Concomitant]
     Active Substance: DICLOFENAC SODIUM
  24. PROPACET [Concomitant]
     Active Substance: ACETAMINOPHEN\PROPOXYPHENE NAPSYLATE
  25. TRIAMTERENE. [Concomitant]
     Active Substance: TRIAMTERENE
  26. HYDROCODONE [Concomitant]
     Active Substance: HYDROCODONE
  27. JANUVIA [Concomitant]
     Active Substance: SITAGLIPTIN PHOSPHATE
  28. FERROUS SULFATE. [Concomitant]
     Active Substance: FERROUS SULFATE
  29. CALCIUM CITRATE [Concomitant]
     Active Substance: CALCIUM CITRATE
  30. HYDROCHLOROTHIAZIDE. [Concomitant]
     Active Substance: HYDROCHLOROTHIAZIDE
  31. ACETAMINOPHEN. [Concomitant]
     Active Substance: ACETAMINOPHEN
  32. HISTINEX [Concomitant]
     Dates: start: 20051209
  33. XANAX [Concomitant]
     Active Substance: ALPRAZOLAM
     Dates: start: 20100927
  34. METOPROLOL TARTRATE. [Concomitant]
     Active Substance: METOPROLOL TARTRATE
  35. ACTOS [Concomitant]
     Active Substance: PIOGLITAZONE HYDROCHLORIDE
  36. PREVACID [Suspect]
     Active Substance: LANSOPRAZOLE
     Route: 065
     Dates: start: 198909, end: 201712
  37. METOPROLOL. [Concomitant]
     Active Substance: METOPROLOL
     Indication: HYPERTENSION
     Dates: start: 20071019, end: 20071120
  38. METFORMIN [Concomitant]
     Active Substance: METFORMIN HYDROCHLORIDE
  39. CEPHALEXIN. [Concomitant]
     Active Substance: CEPHALEXIN
  40. BACTRIM [Concomitant]
     Active Substance: SULFAMETHOXAZOLE\TRIMETHOPRIM
  41. PRILOSEC [Suspect]
     Active Substance: OMEPRAZOLE MAGNESIUM
     Indication: GASTROOESOPHAGEAL REFLUX DISEASE
     Dosage: GENERIC
     Route: 065
     Dates: start: 20101206, end: 20160909
  42. PROTONIX [Suspect]
     Active Substance: PANTOPRAZOLE SODIUM
     Route: 065
     Dates: start: 198909, end: 201712
  43. GABAPENTIN. [Concomitant]
     Active Substance: GABAPENTIN
     Indication: PAIN MANAGEMENT
     Dates: start: 20071019, end: 20071120
  44. LOVENOX [Concomitant]
     Active Substance: ENOXAPARIN SODIUM
  45. CYMBALTA [Concomitant]
     Active Substance: DULOXETINE HYDROCHLORIDE
  46. AVANDIA [Concomitant]
     Active Substance: ROSIGLITAZONE MALEATE
     Dates: start: 20050421
  47. SERTRALINE [Concomitant]
     Active Substance: SERTRALINE HYDROCHLORIDE
  48. KLOR-CON [Concomitant]
     Active Substance: POTASSIUM CHLORIDE

REACTIONS (3)
  - Renal failure [Unknown]
  - Chronic kidney disease [Not Recovered/Not Resolved]
  - Acute kidney injury [Unknown]

NARRATIVE: CASE EVENT DATE: 20150810
